FAERS Safety Report 23994376 (Version 3)
Quarter: 2024Q3

REPORT INFORMATION
  Report Type: Spontaneous
  Country: US (occurrence: US)
  Receive Date: 20240620
  Receipt Date: 20240916
  Transmission Date: 20241016
  Serious: No
  Sender: PFIZER
  Company Number: US-PFIZER INC-PV202400052355

PATIENT
  Age: 15 Year
  Sex: Male

DRUGS (2)
  1. GENOTROPIN [Suspect]
     Active Substance: SOMATROPIN
     Indication: Short stature
     Dosage: ALT 1.4 + 1.6 MG/DAY 7 DAYS/WEEK
  2. GENOTROPIN [Suspect]
     Active Substance: SOMATROPIN
     Dosage: ALT 1.4 + 1.6 MG/DAY 7 DAYS/WEEK

REACTIONS (3)
  - Device leakage [Unknown]
  - Device breakage [Unknown]
  - Drug dose omission by device [Unknown]
